FAERS Safety Report 8578629-9 (Version None)
Quarter: 2012Q3

REPORT INFORMATION
  Report Type: 
  Country: None (occurrence: None)
  Receive Date: 20120808
  Receipt Date: 20120803
  Transmission Date: 20120928
  Serious: Yes (Death, Hospitalization, Other)
  Sender: FDA-Public Use
  Company Number: US-ASTELLAS-2012US006692

PATIENT
  Sex: Female
  Weight: 66 kg

DRUGS (12)
  1. ERLOTINIB HYDROCHLORIDE [Suspect]
     Dosage: 150 MG, UID/QD
     Route: 048
     Dates: end: 20120801
  2. AMBIEN [Suspect]
     Indication: INSOMNIA
     Dosage: UNK
     Route: 065
  3. FLUTICASONE PROPIONATE [Concomitant]
     Indication: DYSPNOEA
     Dosage: 250/50 MCG, 1 PUFF, BID
     Route: 002
     Dates: start: 20101101
  4. OXYCONTIN [Concomitant]
     Indication: PAIN
     Dosage: 20 MG, Q12 HOURS
     Dates: start: 20120606
  5. PREVACID [Concomitant]
     Indication: GASTROOESOPHAGEAL REFLUX DISEASE
     Dosage: 1 DF, UID/QD
     Route: 048
     Dates: start: 20120201
  6. ERLOTINIB HYDROCHLORIDE [Suspect]
     Indication: NON-SMALL CELL LUNG CANCER
     Dosage: 150 MG, UID/QD
     Route: 048
     Dates: start: 20120607, end: 20120712
  7. MAGNESIUM [Concomitant]
     Indication: SUPPLEMENTATION THERAPY
     Dosage: 800 MG, BID
     Route: 048
     Dates: start: 20120411
  8. OXYCODONE HCL [Concomitant]
     Indication: PAIN
     Dosage: 5 MG, PRN, Q4H
     Route: 048
     Dates: start: 20120606
  9. MK2206 [Suspect]
     Indication: NON-SMALL CELL LUNG CANCER
     Dosage: 135 MG, WEEKLY
     Route: 048
     Dates: start: 20120607, end: 20120712
  10. MK2206 [Suspect]
     Dosage: 135 MG, WEEKLY
     Route: 048
     Dates: end: 20120626
  11. CYMBALTA [Concomitant]
     Indication: DEPRESSION
     Dosage: 1 DF, Q6 HOURS PRN
     Route: 048
     Dates: start: 20120523
  12. SPIRIVA [Concomitant]
     Indication: DYSPNOEA
     Dosage: 18 UG, UID/QD
     Route: 002
     Dates: start: 20060101

REACTIONS (20)
  - RASH PAPULAR [None]
  - HYPOMAGNESAEMIA [None]
  - PNEUMOPERICARDIUM [None]
  - BLOOD BILIRUBIN INCREASED [None]
  - HYPERGLYCAEMIA [None]
  - OEDEMA PERIPHERAL [None]
  - BLOOD LACTIC ACID INCREASED [None]
  - INSOMNIA [None]
  - HYPOTENSION [None]
  - HYPOKALAEMIA [None]
  - HYPOCALCAEMIA [None]
  - DECREASED APPETITE [None]
  - RESPIRATORY FAILURE [None]
  - FATIGUE [None]
  - PULMONARY EMBOLISM [None]
  - NAUSEA [None]
  - FAILURE TO THRIVE [None]
  - CONFUSIONAL STATE [None]
  - METABOLIC ACIDOSIS [None]
  - RASH PRURITIC [None]
